FAERS Safety Report 6098802-1 (Version None)
Quarter: 2009Q1

REPORT INFORMATION
  Report Type: 
  Country: None (occurrence: None)
  Receive Date: 20090302
  Receipt Date: 20090219
  Transmission Date: 20090719
  Serious: Yes (Hospitalization, Other)
  Sender: FDA-Public Use
  Company Number: JP-PFIZER INC-2009164007

PATIENT

DRUGS (10)
  1. GABAPEN [Suspect]
     Indication: NEURALGIA
     Dosage: UNK
     Dates: start: 20090116
  2. GABAPEN [Suspect]
     Dosage: UNK
     Route: 048
     Dates: start: 20090120, end: 20090121
  3. GABAPEN [Suspect]
     Dosage: UNK
     Dates: start: 20090113
  4. GABAPEN [Suspect]
     Dosage: UNK
     Dates: start: 20090114
  5. CRESTOR [Suspect]
     Indication: HYPERLIPIDAEMIA
     Route: 048
  6. ALLOPURINOL [Suspect]
     Route: 048
  7. ALL OTHER THERAPEUTIC PRODUCTS [Concomitant]
     Dosage: UNK
  8. AMLODIN [Concomitant]
     Indication: HYPERTENSION
     Route: 048
  9. TOLEDOMIN [Concomitant]
     Indication: DEPRESSION
     Route: 048
  10. HARNAL [Concomitant]
     Indication: BENIGN PROSTATIC HYPERPLASIA
     Route: 048

REACTIONS (5)
  - CERVICAL ROOT PAIN [None]
  - HEPATIC FUNCTION ABNORMAL [None]
  - NEURALGIA [None]
  - PYREXIA [None]
  - WHITE BLOOD CELL COUNT INCREASED [None]
